FAERS Safety Report 7268269-6 (Version None)
Quarter: 2011Q1

REPORT INFORMATION
  Report Type: 
  Country: None (occurrence: None)
  Receive Date: 20110121
  Receipt Date: 20101201
  Transmission Date: 20110831
  Serious: Yes (Other)
  Sender: FDA-Public Use
  Company Number: 2011BI002296

PATIENT
  Age: 74 Year
  Sex: Male
  Weight: 62 kg

DRUGS (6)
  1. FLUDARA [Concomitant]
  2. RITUXAN [Concomitant]
  3. POLARAMINE [Concomitant]
  4. LOXONIN [Concomitant]
  5. RITUXIMAB [Concomitant]
  6. ZEVALIN [Suspect]
     Indication: EXTRANODAL MARGINAL ZONE B-CELL LYMPHOMA (MALT TYPE) STAGE III
     Dosage: 918 MBQ;1X;IV
     Route: 042
     Dates: start: 20100511, end: 20100519

REACTIONS (2)
  - LYMPHOCYTE COUNT DECREASED [None]
  - WHITE BLOOD CELL COUNT DECREASED [None]
